FAERS Safety Report 8353942 (Version 3)
Quarter: 2013Q2

REPORT INFORMATION
  Report Type: Spontaneous
  Country: US (occurrence: US)
  Receive Date: 20120125
  Receipt Date: 20130625
  Transmission Date: 20140414
  Serious: Yes (Other)
  Sender: FDA-Public Use
  Company Number: US-ROCHE-1033113

PATIENT
  Age: 16 Year
  Sex: Male
  Weight: 45.4 kg

DRUGS (3)
  1. ACCUTANE [Suspect]
     Indication: ACNE
     Route: 048
     Dates: start: 20020606, end: 20021212
  2. ACCUTANE [Suspect]
     Route: 065
     Dates: start: 20020708, end: 200212
  3. ACCUTANE [Suspect]
     Route: 065
     Dates: end: 2003

REACTIONS (10)
  - Inflammatory bowel disease [Unknown]
  - Colitis ulcerative [Unknown]
  - Depression [Unknown]
  - Injury [Unknown]
  - Intestinal haemorrhage [Unknown]
  - Suicidal ideation [Unknown]
  - Chapped lips [Unknown]
  - Lip dry [Unknown]
  - Epistaxis [Unknown]
  - Acne [Unknown]
